FAERS Safety Report 4889238-7 (Version None)
Quarter: 2006Q1

REPORT INFORMATION
  Report Type: 
  Country: None (occurrence: None)
  Receive Date: 20060124
  Receipt Date: 20051006
  Transmission Date: 20060701
  Serious: Yes (Other)
  Sender: FDA-Public Use
  Company Number: DE-BOEHRINGER INGELHEIM PHARMACEUTICALS, INC.-2005-DE-04120DE

PATIENT
  Age: 44 Year
  Sex: Male

DRUGS (3)
  1. SIFROL [Suspect]
     Indication: PARKINSON'S DISEASE
     Route: 048
  2. CABASERIL [Concomitant]
  3. PARKOTIL [Concomitant]

REACTIONS (2)
  - CYANOSIS [None]
  - SKIN DISCOLOURATION [None]
